FAERS Safety Report 17771435 (Version 1)
Quarter: 2020Q2

REPORT INFORMATION
  Report Type: Report from Study
  Country: CA (occurrence: CA)
  Receive Date: 20200512
  Receipt Date: 20200512
  Transmission Date: 20200714
  Serious: Yes (Disabling)
  Sender: FDA-Public Use
  Company Number: CA-NALPROPION PHARMACEUTICALS INC.-2020-010238

PATIENT

DRUGS (1)
  1. CONTRAVE [Suspect]
     Active Substance: BUPROPION HYDROCHLORIDE\NALTREXONE HYDROCHLORIDE
     Indication: PRODUCT USED FOR UNKNOWN INDICATION
     Dosage: ONE TABLET IN THE MORNING AND ONE AT NIGHT
     Route: 048
     Dates: start: 202004, end: 202004

REACTIONS (4)
  - Malaise [Unknown]
  - Headache [Unknown]
  - Nausea [Unknown]
  - Gait inability [Unknown]

NARRATIVE: CASE EVENT DATE: 202004
